FAERS Safety Report 6617831-X (Version None)
Quarter: 2010Q1

REPORT INFORMATION
  Report Type: 
  Country: None (occurrence: None)
  Receive Date: 20100308
  Receipt Date: 20100303
  Transmission Date: 20100710
  Serious: Yes (Death)
  Sender: FDA-Public Use
  Company Number: PHHO2010US03443

PATIENT
  Sex: Female
  Weight: 92.3 kg

DRUGS (15)
  1. EXELON [Suspect]
     Indication: DEMENTIA ALZHEIMER'S TYPE
     Dosage: 10CM
     Route: 062
  2. EXELON [Suspect]
     Indication: DEMENTIA ALZHEIMER'S TYPE
     Dosage: 18MG/10CM2
     Route: 062
     Dates: start: 20080424, end: 20100219
  3. COREG [Concomitant]
     Indication: HYPERTENSION
  4. PLAVIX [Concomitant]
     Indication: PROPHYLAXIS
  5. DEMADEX [Concomitant]
     Indication: CARDIAC FAILURE CONGESTIVE
     Dosage: UNK
  6. NEURONTIN [Concomitant]
     Indication: NEUROPATHY PERIPHERAL
  7. LANTUS [Concomitant]
     Indication: TYPE 1 DIABETES MELLITUS
  8. ZETIA [Concomitant]
     Indication: HYPERLIPIDAEMIA
     Dosage: UNK
  9. ZOCOR [Concomitant]
     Indication: HYPERLIPIDAEMIA
  10. IMDUR [Concomitant]
     Indication: CORONARY ARTERY DISEASE
  11. HUMALOG [Concomitant]
     Indication: TYPE 1 DIABETES MELLITUS
  12. ALLOPURINOL [Concomitant]
     Indication: GOUT
  13. MAGNESIUM OXIDE [Concomitant]
     Indication: SUPPLEMENTATION THERAPY
  14. VASOTEC [Concomitant]
     Indication: HYPERTENSION
  15. LEVOTHROID [Concomitant]

REACTIONS (1)
  - DEATH [None]
